FAERS Safety Report 19274826 (Version 1)
Quarter: 2021Q2

REPORT INFORMATION
  Report Type: Spontaneous
  Country: US (occurrence: US)
  Receive Date: 20210519
  Receipt Date: 20210519
  Transmission Date: 20210717
  Serious: Yes (Hospitalization, Other)
  Sender: FDA-Public Use
  Company Number: None

PATIENT
  Sex: Female

DRUGS (13)
  1. DIGOXIN. [Concomitant]
     Active Substance: DIGOXIN
     Dates: start: 20201003
  2. ALLOPURINOL. [Concomitant]
     Active Substance: ALLOPURINOL
     Dates: start: 20201021
  3. FEROSUL [Concomitant]
     Active Substance: FERROUS SULFATE
     Dates: start: 20201022
  4. CLOPIDOGREL [Concomitant]
     Active Substance: CLOPIDOGREL BISULFATE
     Dates: start: 20210422
  5. ELIQUIS [Concomitant]
     Active Substance: APIXABAN
     Dates: start: 20210324
  6. FUROSEMIDE. [Concomitant]
     Active Substance: FUROSEMIDE
     Dates: start: 20210429
  7. PLAVIX [Concomitant]
     Active Substance: CLOPIDOGREL BISULFATE
     Dates: start: 20210518
  8. ATORVASTATIN [Concomitant]
     Active Substance: ATORVASTATIN
     Dates: start: 20201020
  9. METOPROLOL TARTRATE. [Concomitant]
     Active Substance: METOPROLOL TARTRATE
     Dates: start: 20210324
  10. ESCITALOPRAM [Concomitant]
     Active Substance: ESCITALOPRAM OXALATE
     Dates: start: 20210415
  11. LEVOTHYROXIN [Concomitant]
     Active Substance: LEVOTHYROXINE
     Dates: start: 20210316
  12. SILDENAFIL TAB [Suspect]
     Active Substance: SILDENAFIL
     Indication: PULMONARY HYPERTENSION
     Dosage: OTHER FREQUENCY:EVERY 8 HOURS;?
     Route: 048
     Dates: start: 20191007
  13. DILTIAZEM. [Concomitant]
     Active Substance: DILTIAZEM
     Dates: start: 20210401

REACTIONS (1)
  - Cardiac disorder [None]
